FAERS Safety Report 18888514 (Version 1)
Quarter: 2021Q1

REPORT INFORMATION
  Report Type: Report from Study
  Country: CA (occurrence: CA)
  Receive Date: 20210212
  Receipt Date: 20210212
  Transmission Date: 20210420
  Serious: Yes (Life-Threatening, Hospitalization, Other)
  Sender: FDA-Public Use
  Company Number: CA-MYLANLABS-2021M1001502

PATIENT
  Sex: Male
  Weight: 90.71 kg

DRUGS (3)
  1. HALDOL [Concomitant]
     Active Substance: HALOPERIDOL
     Dosage: 20 MILLIGRAM Q4WEEK
     Route: 030
  2. CLOZAPINE. [Suspect]
     Active Substance: CLOZAPINE
     Dosage: 12.5 QAM AND 75 QHS
  3. CLOZAPINE. [Suspect]
     Active Substance: CLOZAPINE
     Indication: SCHIZOPHRENIA
     Dosage: UNK
     Dates: start: 202012, end: 20210106

REACTIONS (6)
  - Nausea [Unknown]
  - Vomiting [Unknown]
  - Hepatitis [Unknown]
  - Systemic inflammatory response syndrome [Unknown]
  - Myocarditis [Unknown]
  - Renal impairment [Unknown]
